FAERS Safety Report 13916032 (Version 2)
Quarter: 2017Q3

REPORT INFORMATION
  Report Type: Spontaneous
  Country: CA (occurrence: CA)
  Receive Date: 20170829
  Receipt Date: 20170918
  Transmission Date: 20171127
  Serious: Yes (Death, Hospitalization, Other)
  Sender: FDA-Public Use
  Company Number: CA-BAYER-2017-160228

PATIENT
  Age: 18 Year
  Sex: Female
  Weight: 63 kg

DRUGS (7)
  1. ACETYLSALICYLIC ACID({=100 MG) [Suspect]
     Active Substance: ASPIRIN
     Dosage: UNK, ONCE; 1.61 MMOL/L
  2. ACETAMINOPHEN. [Suspect]
     Active Substance: ACETAMINOPHEN
     Dosage: UNK; 239 ?MOL/L
  3. QUETIAPINE. [Suspect]
     Active Substance: QUETIAPINE
     Dosage: 25 MG, QD
  4. ALCOHOL. [Suspect]
     Active Substance: ALCOHOL
     Dosage: UNK; 1.2 MMOL/L
  5. CITALOPRAM [Concomitant]
     Active Substance: CITALOPRAM HYDROBROMIDE
     Dosage: 20 MG, QD
  6. ATOMOXETINE. [Concomitant]
     Active Substance: ATOMOXETINE HYDROCHLORIDE
     Dosage: 60 MG, QD
  7. ISONIAZID. [Concomitant]
     Active Substance: ISONIAZID
     Dosage: 300 MG, QD

REACTIONS (9)
  - Atrial fibrillation [None]
  - Myocarditis [Fatal]
  - Cardiac arrest [Fatal]
  - Renal tubular necrosis [None]
  - Toxicity to various agents [Fatal]
  - Suicide attempt [None]
  - Intentional overdose [None]
  - Encephalopathy [None]
  - Hepatic failure [None]
